FAERS Safety Report 18804587 (Version 2)
Quarter: 2022Q1

REPORT INFORMATION
  Report Type: Spontaneous
  Country: US (occurrence: US)
  Receive Date: 20210129
  Receipt Date: 20220222
  Transmission Date: 20220423
  Serious: Yes (Other)
  Sender: FDA-Public Use
  Company Number: US-UCBSA-2020035441

PATIENT
  Sex: Female

DRUGS (1)
  1. KEPPRA [Suspect]
     Active Substance: LEVETIRACETAM
     Indication: Partial seizures
     Dosage: UNK

REACTIONS (6)
  - Anger [Unknown]
  - Depressed mood [Unknown]
  - Affective disorder [Unknown]
  - Somnolence [Unknown]
  - Feeling abnormal [Unknown]
  - Drug ineffective [Unknown]
